FAERS Safety Report 11722459 (Version 1)
Quarter: 2015Q4

REPORT INFORMATION
  Report Type: Spontaneous
  Country: CO (occurrence: None)
  Receive Date: 20151110
  Receipt Date: 20151110
  Transmission Date: 20160304
  Serious: Yes (Life-Threatening, Disabling)
  Sender: FDA-Public Use
  Company Number: None

PATIENT
  Age: 27 Year
  Sex: Male
  Weight: 79 kg

DRUGS (1)
  1. ALEVE PM [Suspect]
     Active Substance: DIPHENHYDRAMINE HYDROCHLORIDE\NAPROXEN SODIUM
     Indication: ABDOMINAL PAIN UPPER
     Dosage: 1 PILL
     Route: 048
     Dates: start: 20150811, end: 20150811

REACTIONS (6)
  - Morbid thoughts [None]
  - Anxiety [None]
  - Suicidal ideation [None]
  - Heart rate increased [None]
  - Sleep disorder [None]
  - Depression [None]

NARRATIVE: CASE EVENT DATE: 20150811
